FAERS Safety Report 6990276-9 (Version None)
Quarter: 2010Q3

REPORT INFORMATION
  Report Type: 
  Country: None (occurrence: None)
  Receive Date: 20100916
  Receipt Date: 20100511
  Transmission Date: 20110219
  Serious: Yes (Other)
  Sender: FDA-Public Use
  Company Number: FR-PFIZER INC-2010059006

PATIENT
  Age: 76 Year
  Sex: Male

DRUGS (8)
  1. LYRICA [Suspect]
     Indication: NEURALGIA
     Dosage: 200 MG, UNK
  2. AMLODIPINE [Concomitant]
  3. ZITHROMAX [Concomitant]
     Indication: BRONCHITIS
     Dosage: UNK
  4. IRBESARTAN [Concomitant]
  5. LASIX [Concomitant]
     Dosage: UNK
  6. SYMBICORT [Concomitant]
  7. NITRODERM [Concomitant]
  8. TARDYFERON [Concomitant]

REACTIONS (3)
  - CONVULSION [None]
  - DYSKINESIA [None]
  - MALAISE [None]
